FAERS Safety Report 7156998-4 (Version None)
Quarter: 2010Q4

REPORT INFORMATION
  Report Type: 
  Country: None (occurrence: None)
  Receive Date: 20101214
  Receipt Date: 20100126
  Transmission Date: 20110411
  Serious: No
  Sender: FDA-Public Use
  Company Number: US-ASTRAZENECA-2010SE03498

PATIENT
  Age: 71 Year
  Sex: Female
  Weight: 65.8 kg

DRUGS (2)
  1. CRESTOR [Suspect]
     Indication: BLOOD CHOLESTEROL
     Route: 048
     Dates: start: 20100113
  2. GLYBURIDE [Concomitant]
     Indication: DIABETES MELLITUS

REACTIONS (1)
  - COUGH [None]
